FAERS Safety Report 15143713 (Version 1)
Quarter: 2018Q3

REPORT INFORMATION
  Report Type: Spontaneous
  Country: US (occurrence: US)
  Receive Date: 20180618
  Receipt Date: 20180618
  Transmission Date: 20181010
  Serious: Yes (Other)
  Sender: FDA-Public Use
  Company Number: None

PATIENT
  Age: 54 Year
  Sex: Female
  Weight: 100 kg

DRUGS (1)
  1. DAPTOMYCIN 600 HOSPIRA [Suspect]
     Active Substance: DAPTOMYCIN
     Indication: OSTEOPOROSIS
     Route: 042
     Dates: start: 20180330, end: 20180402

REACTIONS (3)
  - Seizure [None]
  - Tremor [None]
  - Chills [None]

NARRATIVE: CASE EVENT DATE: 20180401
